FAERS Safety Report 10152636 (Version 1)
Quarter: 2014Q2

REPORT INFORMATION
  Report Type: Spontaneous
  Country: US (occurrence: None)
  Receive Date: 20140502
  Receipt Date: 20140502
  Transmission Date: 20141212
  Serious: No
  Sender: FDA-Public Use
  Company Number: None

PATIENT
  Age: 71 Year
  Sex: Female
  Weight: 55.18 kg

DRUGS (35)
  1. CYTARABINE [Suspect]
     Dosage: ARA C 1.5G/M2/DAY ON DAYS 4-7 ADMINISTRATION DATES (03/29/2014-04/01/2014)
  2. IDARUBICIN [Suspect]
     Dosage: IDARUBICIN 12 MG/M2/DAY IV OVER 10-15 MINS ON DAYS 4-6 ADMINISTRATION DATES (3/29/2014-3/31/2014)
  3. PRAVASTATIN SODIUM [Suspect]
  4. ACETAMINOPHEN [Concomitant]
  5. ACYCLOVIR [Concomitant]
  6. ALLOPURINOL [Concomitant]
  7. APREPITANT [Concomitant]
  8. BIOTENE [Concomitant]
  9. DIPHENHYDRAMINE [Concomitant]
  10. ESCITALOPRAM [Concomitant]
  11. FAT EMULSION [Concomitant]
  12. FLUCONAZOLE [Concomitant]
  13. FUROSEMIDE [Concomitant]
  14. HALOPERIDOL [Concomitant]
  15. HEPARIN [Concomitant]
  16. HYDROCORTISONE [Concomitant]
  17. HYDROCORTISONE CREAM [Concomitant]
  18. LEVOTHYROXINE [Concomitant]
  19. LOMOTIL [Concomitant]
  20. LORAZEPAM [Concomitant]
  21. MAGENSIUM S04 RIDER [Concomitant]
  22. MEROPENEM [Concomitant]
  23. METOPROLOL [Concomitant]
  24. METRONIDAZOLE [Concomitant]
  25. MIRALAX [Concomitant]
  26. MORPHINE [Concomitant]
  27. NEUTRA-PHOS PACKETS [Concomitant]
  28. NYSTATIN [Concomitant]
  29. ODANSETRON [Concomitant]
  30. PANTROPRAZOLE [Concomitant]
  31. PHENYLEPRINE [Concomitant]
  32. POTASSIUM CHLORIDE RIDER [Concomitant]
  33. PROCHLORPERAZINE [Concomitant]
  34. PHYSICIAN PACKETS [Concomitant]
  35. VITAMIN K INJECTION [Concomitant]

REACTIONS (20)
  - Nausea [None]
  - Vomiting [None]
  - Abdominal pain [None]
  - Diarrhoea [None]
  - Hepatic lesion [None]
  - Haemangioma [None]
  - Pleural effusion [None]
  - Atelectasis [None]
  - Ascites [None]
  - Haemoglobin decreased [None]
  - Gastrointestinal disorder [None]
  - Haemorrhage [None]
  - Hypophagia [None]
  - Cardiac failure congestive [None]
  - Deep vein thrombosis [None]
  - Pulmonary embolism [None]
  - Chest pain [None]
  - Atrial fibrillation [None]
  - Pyrexia [None]
  - Troponin increased [None]
